FAERS Safety Report 9103533 (Version 5)
Quarter: 2013Q2

REPORT INFORMATION
  Report Type: Spontaneous
  Country: US (occurrence: US)
  Receive Date: 20130219
  Receipt Date: 20130628
  Transmission Date: 20140414
  Serious: Yes (Death, Hospitalization)
  Sender: FDA-Public Use
  Company Number: US-PFIZER INC-2013060148

PATIENT
  Age: 55 Year
  Sex: Male

DRUGS (5)
  1. SUTENT [Suspect]
     Indication: RENAL CANCER METASTATIC
     Dosage: 50 MG, DAILY 4WKS ON AND OFF
     Route: 048
     Dates: start: 20130208, end: 20130220
  2. MORPHINE [Concomitant]
     Indication: BREAKTHROUGH PAIN
     Dosage: 90 MG, 2X/DAY
  3. MORPHINE IR [Concomitant]
     Indication: BREAKTHROUGH PAIN
     Dosage: 15 MG, AS NEEDED
  4. DULCOLAX [Concomitant]
     Dosage: UNK
  5. MIRALAX [Concomitant]
     Dosage: UNK

REACTIONS (7)
  - Disease progression [Fatal]
  - Renal cancer metastatic [Fatal]
  - Respiratory distress [Fatal]
  - Respiratory arrest [Fatal]
  - Pneumonia [Unknown]
  - Dyspnoea [Unknown]
  - Dry skin [Unknown]
